FAERS Safety Report 10897009 (Version 1)
Quarter: 2015Q1

REPORT INFORMATION
  Report Type: Spontaneous
  Country: US (occurrence: None)
  Receive Date: 20150302
  Receipt Date: 20150302
  Transmission Date: 20150721
  Serious: Yes (Hospitalization)
  Sender: FDA-Public Use
  Company Number: None

PATIENT
  Age: 56 Year
  Sex: Male
  Weight: 99.79 kg

DRUGS (4)
  1. BUPROPION [Concomitant]
     Active Substance: BUPROPION
  2. ADDERALL [Concomitant]
     Active Substance: AMPHETAMINE ASPARTATE\AMPHETAMINE SULFATE\DEXTROAMPHETAMINE SACCHARATE\DEXTROAMPHETAMINE SULFATE
  3. MULTIVITAMIN [Concomitant]
     Active Substance: VITAMINS
  4. AVASTIN [Suspect]
     Active Substance: BEVACIZUMAB
     Indication: CYSTOID MACULAR OEDEMA
     Dates: start: 20140809, end: 20150218

REACTIONS (7)
  - Oropharyngeal pain [None]
  - Eyelid ptosis [None]
  - Cough [None]
  - Skin burning sensation [None]
  - Pain [None]
  - Peripheral swelling [None]
  - Paraesthesia [None]

NARRATIVE: CASE EVENT DATE: 20150112
